FAERS Safety Report 11938318 (Version 1)
Quarter: 2016Q1

REPORT INFORMATION
  Report Type: Spontaneous
  Country: US (occurrence: US)
  Receive Date: 20160122
  Receipt Date: 20160122
  Transmission Date: 20160526
  Serious: No
  Sender: FDA-Public Use
  Company Number: US-ASTRAZENECA-2016SE03848

PATIENT
  Age: 977 Month
  Sex: Female

DRUGS (5)
  1. SINGULAIR INHALER [Concomitant]
     Indication: BRONCHITIS
     Route: 055
  2. COUMADIN [Concomitant]
     Active Substance: WARFARIN SODIUM
     Indication: CARDIAC DISORDER
     Route: 048
  3. NASAL SPRAY [Concomitant]
     Active Substance: UNSPECIFIED INGREDIENT
     Route: 045
  4. SINGULAIR INHALER [Concomitant]
     Indication: ASTHMA
     Route: 055
  5. PULMICORT TURBUHALER [Suspect]
     Active Substance: BUDESONIDE
     Indication: ASTHMA
     Route: 055
     Dates: start: 201511

REACTIONS (8)
  - Prothrombin time abnormal [Unknown]
  - Asthma [Unknown]
  - Wheezing [Unknown]
  - Upper respiratory tract infection [Unknown]
  - Oxygen saturation decreased [Unknown]
  - Bronchitis [Unknown]
  - Device failure [Unknown]
  - Intentional device misuse [Unknown]

NARRATIVE: CASE EVENT DATE: 201601
